FAERS Safety Report 6781936-3 (Version None)
Quarter: 2010Q2

REPORT INFORMATION
  Report Type: 
  Country: None (occurrence: None)
  Receive Date: 20100621
  Receipt Date: 20100609
  Transmission Date: 20101027
  Serious: Yes (Hospitalization)
  Sender: FDA-Public Use
  Company Number: IL-ELI_LILLY_AND_COMPANY-IL201006002785

PATIENT
  Age: 55 Year
  Sex: Male

DRUGS (2)
  1. EFFIENT [Suspect]
     Indication: THROMBOSIS IN DEVICE
     Dosage: 10 MG, UNK
     Route: 065
     Dates: start: 20100606
  2. PLAVIX [Concomitant]
     Dosage: UNK UNK, UNKNOWN

REACTIONS (3)
  - HYPERCOAGULATION [None]
  - INTENTIONAL DRUG MISUSE [None]
  - VASCULAR GRAFT [None]
